FAERS Safety Report 21850893 (Version 2)
Quarter: 2023Q1

REPORT INFORMATION
  Report Type: Spontaneous
  Country: US (occurrence: US)
  Receive Date: 20230111
  Receipt Date: 20230209
  Transmission Date: 20230418
  Serious: Yes (Hospitalization, Other)
  Sender: FDA-Public Use
  Company Number: US-BRISTOL-MYERS SQUIBB COMPANY-2023-004473

PATIENT
  Age: 70 Year
  Sex: Female
  Weight: 69.85 kg

DRUGS (27)
  1. REVLIMID [Suspect]
     Active Substance: LENALIDOMIDE
     Indication: Plasma cell myeloma
     Dosage: FREQUENCY- ONCE DAILY FOR 21 DAYS THEN 7 DAYS OFF.
     Route: 048
     Dates: start: 202103, end: 20230101
  2. REVLIMID [Suspect]
     Active Substance: LENALIDOMIDE
     Dosage: FREQUENCY- ONCE DAILY FOR 21 DAYS THEN 7 DAYS OFF.
     Route: 048
     Dates: start: 20220623
  3. ACYCLOVIR [Concomitant]
     Active Substance: ACYCLOVIR
     Indication: Product used for unknown indication
     Dosage: LAST SOLD DATE OF ACYCLOVIR-400 WAS 31-DEC-2022, 10-AUG-2022, 31-MAY-202106-DEC-2021
     Route: 048
  4. AZITHROMYCIN [Concomitant]
     Active Substance: AZITHROMYCIN
     Indication: Product used for unknown indication
     Dosage: FREQUENCY- TAKE 2 TABLETS BY MOUTH ON DAY 1 THEN 1 TABLET EVERYDAY AS DIRECTED.?LAT SOLD DATE OF AZI
     Route: 048
  5. AZITHROMYCIN [Concomitant]
     Active Substance: AZITHROMYCIN
     Indication: Product used for unknown indication
     Dosage: AZITHROMYCIN-250MG TABLETS-6 PAK?FREQUENCY- TAKE 2 TABLETS BY MOUTH FOR 1 DAY THEN TAKE 1 TABLET BY
     Route: 048
  6. BACITRACIN [Concomitant]
     Active Substance: BACITRACIN
     Indication: Product used for unknown indication
     Dosage: APPLY A SMALL AMOUNT IN THE LEFT EYE AT BEDTIME.?LAT SOLD DATE OF BACITRACIN-3.5GM WAS 21-JUN-2021
  7. BENAZEPRIL/HYDROCHLOROTHIAZIDE ACTAVIS [Concomitant]
     Indication: Blood pressure measurement
     Dosage: DOSE-20/12.5MG ?FREQUENCY- TAKE 2 TABLETS BY MOUTH EVERYDAY?LAT SOLD DATE OF BENAZEPRIL/HYDROCHLOROT
     Route: 048
  8. CIPROFLOXACIN [Concomitant]
     Active Substance: CIPROFLOXACIN
     Indication: Product used for unknown indication
     Dosage: FREQUENCY- TAKE 1 TABLET BY MOUTH FOR EVERY 12 HOURS FOR 5 DAYS.?LAT SOLD DATE OF CIPROFLOXACIN WAS
     Route: 048
  9. DEXAMETHASONE [Concomitant]
     Active Substance: DEXAMETHASONE
     Indication: Product used for unknown indication
     Dosage: FREQUENCY- TAKE 10 TABLETS (40MG) BY MOUTH ONCE ON DAYS 1, 8 AND 15 OF EACH CYCLE. TOTAL WEEKLY DOSE
     Route: 048
  10. DOXYCYCLINE HYDROCHLORIDE [DOXYCYCLINE HYCLATE] [Concomitant]
     Indication: Product used for unknown indication
     Dosage: FREQUENCY- TAKE 1 CAPSULE BY MOUTH TWICE DAILY.?LAT SOLD DATE OF DOXYCYCLINE HYDROCHLORIDE WAS 21-JU
     Route: 048
  11. ERYTHROMYCIN [Concomitant]
     Active Substance: ERYTHROMYCIN
     Indication: Product used for unknown indication
     Dosage: FREQUENCY- APPLY SPARINGLY (1 CM RIBBON) IN BILATERAL EYES FOUR TIMES DAILY FOR UPTO 10 DAYS.?LAT SO
  12. GLIPIZIDE [Concomitant]
     Active Substance: GLIPIZIDE
     Indication: Product used for unknown indication
     Dosage: FREQUENCY- TAKE 1 TABLET BY MOUTH TWICE DAILY.?LAT SOLD DATE OF GLIPIZIDE WAS 29-OCT-2020
     Route: 048
  13. HYDROXYZINE PAMOATE [Concomitant]
     Active Substance: HYDROXYZINE PAMOATE
     Indication: Pruritus
     Dosage: FREQUENCY- TAKE 1 CAPSULE BY MOTH EVERY 6 HOURS AS NEEDED FOR ITCHING.?LAT SOLD DATE OF HYDROXYZINE
     Route: 048
  14. LEVOFLOXACIN [Concomitant]
     Active Substance: LEVOFLOXACIN
     Indication: Product used for unknown indication
     Dosage: FREQUENCY- TAKE 1 TABLET BY MOUTH DAILY FOR 4 DAYS.?LAT SOLD DATE OF LEVOFLOXACIN WAS 09-JAN-2023
     Route: 048
  15. LIDOCAINE [Concomitant]
     Active Substance: LIDOCAINE
     Indication: Product used for unknown indication
     Dosage: FREQUENCY- UNWRAP AND APPLY 1 PATCH TO THE SKIN FOR 12 HOURS EVERY 24 HOURS (12 HOURS ON 12 HOURS OF
  16. LISINOPRIL [Concomitant]
     Active Substance: LISINOPRIL
     Indication: Product used for unknown indication
     Dosage: FREQUENCY-TAKE 1 TABLET BY MOUTH DAILY.?LAT SOLD DATE OF LISINOPRIL WAS 23-OCT-2021
     Route: 048
  17. LOPERAMIDE [Concomitant]
     Active Substance: LOPERAMIDE
     Indication: Product used for unknown indication
     Dosage: FREQUENCY-TAKE 1 CAPSULE BY MOUTH UP TO THREE TIMES DAILY PRIOR TO A MEAL AS NEEDED.?LAT SOLD DATE O
     Route: 048
  18. METHYLPREDNISOLONE [Concomitant]
     Active Substance: METHYLPREDNISOLONE
     Indication: Product used for unknown indication
     Dosage: FREQUENCY-FOLLOW PACKAGE DIRECTION?LAT SOLD DATE OF LOPERAMIDE WAS 15-JUL-2021
  19. MIRTAZAPINE [Concomitant]
     Active Substance: MIRTAZAPINE
     Indication: Product used for unknown indication
     Dosage: FREQUENCY- TAKE 1 TABLET BY MOUTH NIGHTLY?LAT SOLD DATE OF MIRTAZAPINE WAS 09-JAN-2023
     Route: 048
  20. NITROFURANTOIN MONOHYDRATE MACROCRYSTALS [Concomitant]
     Active Substance: NITROFURANTOIN\NITROFURANTOIN MONOHYDRATE
     Indication: Product used for unknown indication
     Dosage: FREQUENCY- TAKE 1CAPSULE BY MOUTH TWICE DAILY WITH FOOD/MEAL?LAT SOLD DATE OF NITROFURANTOIN MONO/MA
     Route: 048
  21. OXYCODONE AND ACETAMINOPHEN [Concomitant]
     Active Substance: ACETAMINOPHEN\OXYCODONE HYDROCHLORIDE
     Indication: Pain
     Dosage: DOSE-5-325MG ?FREQUENCY- TAKE 1 TABLET BY MOUTH EVERY 4-6 HOURS AS NEEDED FOR PAIN?LAT SOLD DATE OF
     Route: 048
  22. PAXLOVID [Concomitant]
     Active Substance: NIRMATRELVIR\RITONAVIR
     Indication: Product used for unknown indication
     Dosage: DOSE-STANDARD DOSE ANK?FREQUENCY- TAKE 2 NIRMATRELVIR TABLETS AND 1 RITONAVIR TABLETS TOGETHER BY MO
     Route: 048
  23. POTASSIUM CHLORIDE [Concomitant]
     Active Substance: POTASSIUM CHLORIDE
     Indication: Product used for unknown indication
     Dosage: DOSE-20MEQ ER TABLETS?FREQUENCY- TAKE 2 TABLETS BY MOUTH FOR 1 DAY THEN TAKE 1 TABLET BY MOUTH DAILY
     Route: 048
  24. SPIRONOLACTONE [Concomitant]
     Active Substance: SPIRONOLACTONE
     Indication: Product used for unknown indication
     Dosage: FREQUENCY- TAKE 1 TABLET BY MOUTH EVERY DAY, TAKE 1/2 TABLET BY MOUTH DAILY. HOLD FOR DIZZINESS OR B
     Route: 048
  25. TRAMADOL [Concomitant]
     Active Substance: TRAMADOL
     Indication: Pain
     Dosage: FREQUENCY- TAKE 1 TABLET BY MOUTH EVERY SIX HOURS FOR UP TO 7 DAYS AS NEEDED FOR PAIN.?MAX DAILY AMO
     Route: 048
  26. XARELTO [Concomitant]
     Active Substance: RIVAROXABAN
     Indication: Product used for unknown indication
     Dosage: FREQUENCY- TAKE 1 TABLET BY MOUTH DAILY, TAKE 1 TABLET BY MOUTH DAILY WITH MEAL/FOOD.?LAT SOLD DATE
     Route: 048
  27. BENZONATATE [Concomitant]
     Active Substance: BENZONATATE
     Indication: Product used for unknown indication

REACTIONS (2)
  - COVID-19 pneumonia [Unknown]
  - Fatigue [Unknown]

NARRATIVE: CASE EVENT DATE: 20230101
